FAERS Safety Report 5103921-X (Version None)
Quarter: 2006Q3

REPORT INFORMATION
  Report Type: 
  Country: None (occurrence: None)
  Receive Date: 20060913
  Receipt Date: 20060905
  Transmission Date: 20061208
  Serious: Yes (Death)
  Sender: FDA-Public Use
  Company Number: US-JNJFOC-20060901961

PATIENT
  Age: 50 Year
  Sex: Female

DRUGS (6)
  1. FENTANYL [Suspect]
     Indication: DRUG USE FOR UNKNOWN INDICATION
     Route: 062
  2. COCAINE [Suspect]
     Indication: DRUG USE FOR UNKNOWN INDICATION
  3. ACETAMINOPHEN [Concomitant]
  4. HYDROCODONE BITARTRATE [Concomitant]
  5. AMITRIPTYLINE HCL [Concomitant]
  6. PROTON PUMP INHIBITOR [Concomitant]

REACTIONS (1)
  - CARDIAC ARREST [None]
